FAERS Safety Report 25067785 (Version 1)
Quarter: 2025Q1

REPORT INFORMATION
  Report Type: Spontaneous
  Country: US (occurrence: None)
  Receive Date: 20250311
  Receipt Date: 20250311
  Transmission Date: 20250408
  Serious: No
  Sender: FDA-CTU
  Company Number: None

PATIENT
  Age: 74 Year
  Sex: Female

DRUGS (1)
  1. LENALIDOMIDE [Suspect]
     Active Substance: LENALIDOMIDE
     Indication: Marginal zone lymphoma
     Dosage: FREQUENCY : DAILY;?
     Route: 048
     Dates: start: 20241017, end: 20250124

REACTIONS (3)
  - Neutropenia [None]
  - Fatigue [None]
  - Haemorrhage [None]

NARRATIVE: CASE EVENT DATE: 20250124
